FAERS Safety Report 24731075 (Version 1)
Quarter: 2024Q4

REPORT INFORMATION
  Report Type: Spontaneous
  Country: TR (occurrence: TR)
  Receive Date: 20241213
  Receipt Date: 20241213
  Transmission Date: 20250114
  Serious: Yes (Other)
  Sender: RANBAXY
  Company Number: TR-SUN PHARMACEUTICAL INDUSTRIES LTD-2024R1-484218

PATIENT
  Age: 36 Year
  Sex: Female

DRUGS (4)
  1. SODIUM CHLORIDE [Suspect]
     Active Substance: SODIUM CHLORIDE
     Indication: Temporomandibular pain and dysfunction syndrome
     Dosage: UNK 2 ML OF 0.9% SALINE 5 IU PER 0.1 ML
     Route: 065
  2. SODIUM CHLORIDE [Suspect]
     Active Substance: SODIUM CHLORIDE
     Indication: Bruxism
  3. BOTOX [Suspect]
     Active Substance: ONABOTULINUMTOXINA
     Indication: Bruxism
     Dosage: UNK
     Route: 065
  4. BOTOX [Suspect]
     Active Substance: ONABOTULINUMTOXINA
     Indication: Temporomandibular pain and dysfunction syndrome

REACTIONS (2)
  - Disease recurrence [Unknown]
  - Velopharyngeal incompetence [Recovered/Resolved]
